FAERS Safety Report 9558229 (Version 1)
Quarter: 2013Q3

REPORT INFORMATION
  Report Type: Spontaneous
  Country: FR (occurrence: FR)
  Receive Date: 20130926
  Receipt Date: 20130926
  Transmission Date: 20140515
  Serious: Yes (Other)
  Sender: FDA-Public Use
  Company Number: FR-ELI_LILLY_AND_COMPANY-FR201309005397

PATIENT
  Age: 63 Year
  Sex: Female

DRUGS (12)
  1. ALIMTA [Suspect]
     Indication: LUNG CARCINOMA CELL TYPE UNSPECIFIED STAGE 0
     Dosage: 500 MG/M2, EVERY 21 DAYS
     Route: 042
     Dates: start: 20130628, end: 20130808
  2. CISPLATINE [Suspect]
     Indication: LUNG CARCINOMA CELL TYPE UNSPECIFIED STAGE 0
     Dosage: 75 MG/M2, EVERY 21 DAYS
     Route: 042
     Dates: start: 20130628, end: 20130808
  3. EMEND [Suspect]
     Dosage: UNK
     Route: 048
     Dates: start: 20130628
  4. SEROPRAM [Concomitant]
     Dosage: UNK
  5. KEPPRA [Concomitant]
     Dosage: UNK
  6. SOLUPRED                           /00016201/ [Concomitant]
     Dosage: UNK
  7. INEXIUM [Concomitant]
     Dosage: UNK
  8. DIFFU K [Concomitant]
     Dosage: UNK
  9. STILNOX [Concomitant]
     Dosage: UNK
  10. PARACETAMOL [Concomitant]
     Dosage: UNK
  11. PRIMPERAN [Concomitant]
     Dosage: UNK
  12. INNOHEP [Concomitant]
     Dosage: UNK

REACTIONS (1)
  - Hepatocellular injury [Recovering/Resolving]
